FAERS Safety Report 7606964-7 (Version None)
Quarter: 2011Q3

REPORT INFORMATION
  Report Type: 
  Country: None (occurrence: None)
  Receive Date: 20110713
  Receipt Date: 20110708
  Transmission Date: 20111222
  Serious: Yes (Life-Threatening, Hospitalization)
  Sender: FDA-Public Use
  Company Number: US-CELGENEUS-163-21880-11040842

PATIENT
  Sex: Female
  Weight: 114.41 kg

DRUGS (12)
  1. ASPIRIN [Concomitant]
     Dosage: 81 MILLIGRAM
     Route: 048
  2. ALLOPURINOL [Concomitant]
     Dosage: 300 MILLIGRAM
     Route: 065
     Dates: start: 20030101
  3. REVLIMID [Suspect]
     Indication: MULTIPLE MYELOMA
     Dosage: 25 MILLIGRAM
     Route: 048
     Dates: start: 20110316, end: 20110320
  4. NEURONTIN [Concomitant]
     Indication: NEUROPATHY PERIPHERAL
     Dosage: 300 MILLIGRAM
     Route: 048
     Dates: start: 20080101
  5. TYLENOL W/ CODEINE [Concomitant]
     Dosage: 325-30MG
     Route: 048
  6. AMARYL [Concomitant]
     Dosage: 2 MILLIGRAM
     Route: 048
     Dates: start: 20040101
  7. ATENOLOL [Concomitant]
     Dosage: 50 MILLIGRAM
     Route: 048
     Dates: start: 19950101
  8. LOVASTATIN [Concomitant]
     Dosage: 80 MILLIGRAM
     Route: 048
     Dates: start: 20100701
  9. DEXAMETHASONE [Concomitant]
     Dosage: 20 MILLIGRAM
     Route: 048
     Dates: start: 20110301
  10. VELCADE [Concomitant]
     Route: 065
  11. FUROSEMIDE [Concomitant]
     Dosage: 40 MILLIGRAM
     Route: 048
     Dates: start: 19960101
  12. ASPIRIN [Concomitant]
     Dosage: 325 MILLIGRAM
     Route: 048
     Dates: start: 20110301

REACTIONS (3)
  - LEUKOCYTOCLASTIC VASCULITIS [None]
  - RENAL IMPAIRMENT [None]
  - MULTIPLE MYELOMA [None]
